FAERS Safety Report 7996065-0 (Version None)
Quarter: 2011Q4

REPORT INFORMATION
  Report Type: 
  Country: None (occurrence: None)
  Receive Date: 20111220
  Receipt Date: 20111212
  Transmission Date: 20120403
  Serious: Yes (Hospitalization, Other)
  Sender: FDA-Public Use
  Company Number: PHEH2011US011574

PATIENT
  Sex: Male

DRUGS (5)
  1. NORVASC [Suspect]
     Indication: BLOOD PRESSURE
     Dosage: 5MG, DAILY
  2. PROTONIX [Concomitant]
     Indication: ABDOMINAL DISCOMFORT
  3. GLEEVEC [Suspect]
     Dosage: 400 MG, DAILY
     Route: 048
  4. TRAMADOL HCL [Concomitant]
     Indication: PAIN
  5. NORVASC [Suspect]
     Dosage: 10 MG, DAILY

REACTIONS (4)
  - ABASIA [None]
  - FATIGUE [None]
  - GOUT [None]
  - HYPERTENSION [None]
